FAERS Safety Report 19211870 (Version 1)
Quarter: 2021Q2

REPORT INFORMATION
  Report Type: Spontaneous
  Country: US (occurrence: US)
  Receive Date: 20210504
  Receipt Date: 20210504
  Transmission Date: 20210717
  Serious: Yes (Hospitalization)
  Sender: FDA-Public Use
  Company Number: None

PATIENT
  Age: 74 Year
  Sex: Male
  Weight: 64.9 kg

DRUGS (2)
  1. PEMBROLIZUMAB (MK?3475) (776864) [Suspect]
     Active Substance: PEMBROLIZUMAB
     Dates: end: 20210325
  2. ALIMTA [Concomitant]
     Active Substance: PEMETREXED DISODIUM
     Dates: end: 20210325

REACTIONS (1)
  - Transitional cell carcinoma [None]

NARRATIVE: CASE EVENT DATE: 20210408
